FAERS Safety Report 24178431 (Version 1)
Quarter: 2024Q3

REPORT INFORMATION
  Report Type: Spontaneous
  Country: US (occurrence: None)
  Receive Date: 20240805
  Receipt Date: 20240805
  Transmission Date: 20241016
  Serious: No
  Sender: Public
  Company Number: None

PATIENT

DRUGS (4)
  1. ONDANSETRON [Suspect]
     Active Substance: ONDANSETRON
     Dosage: TABLET ORAL
     Route: 048
  2. ONDANSETRON [Suspect]
     Active Substance: ONDANSETRON
     Dosage: TABLET ORAL
     Route: 048
  3. ONDANSETRON [Suspect]
     Active Substance: ONDANSETRON
     Dosage: TABLET ORAL
     Route: 048
  4. ONDANSETRON [Suspect]
     Active Substance: ONDANSETRON
     Dosage: TABLET ORAL
     Route: 048

REACTIONS (5)
  - Product commingling [None]
  - Intercepted product dispensing error [None]
  - Product appearance confusion [None]
  - Product packaging confusion [None]
  - Product dosage form issue [None]
